FAERS Safety Report 9842396 (Version 1)
Quarter: 2014Q1

REPORT INFORMATION
  Report Type: Spontaneous
  Country: US (occurrence: US)
  Receive Date: 20140124
  Receipt Date: 20140124
  Transmission Date: 20141002
  Serious: No
  Sender: FDA-Public Use
  Company Number: US-GILEAD-2011-0037256

PATIENT
  Age: 60 Year
  Sex: Female

DRUGS (1)
  1. RANEXA [Suspect]
     Indication: CORONARY ARTERY DISEASE
     Route: 048

REACTIONS (2)
  - Chromaturia [Unknown]
  - Dysuria [Unknown]
